FAERS Safety Report 24592926 (Version 1)
Quarter: 2024Q4

REPORT INFORMATION
  Report Type: Spontaneous
  Country: CH (occurrence: CH)
  Receive Date: 20241108
  Receipt Date: 20241108
  Transmission Date: 20250114
  Serious: Yes (Other)
  Sender: ALEXION PHARMACEUTICALS
  Company Number: None

PATIENT
  Age: 65 Year
  Weight: 68 kg

DRUGS (8)
  1. IMFINZI [Suspect]
     Active Substance: DURVALUMAB
     Indication: Squamous cell carcinoma of lung
     Dosage: 680 MILLIGRAM, 2 TIMES A WEEK
  2. IMFINZI [Suspect]
     Active Substance: DURVALUMAB
     Dosage: 680 MILLIGRAM, 2 TIMES A WEEK
  3. IMFINZI [Suspect]
     Active Substance: DURVALUMAB
     Dosage: 680 MILLIGRAM, 2 TIMES A WEEK
  4. IMFINZI [Suspect]
     Active Substance: DURVALUMAB
     Dosage: 680 MILLIGRAM, 2 TIMES A WEEK
  5. CARBOPLATIN [Suspect]
     Active Substance: CARBOPLATIN
     Indication: Squamous cell carcinoma of lung
  6. CARBOPLATIN [Suspect]
     Active Substance: CARBOPLATIN
  7. NAVELBINE [Suspect]
     Active Substance: VINORELBINE TARTRATE
     Indication: Squamous cell carcinoma of lung
  8. NAVELBINE [Suspect]
     Active Substance: VINORELBINE TARTRATE

REACTIONS (1)
  - Thrombocytopenia [Not Recovered/Not Resolved]
